FAERS Safety Report 14230005 (Version 1)
Quarter: 2017Q4

REPORT INFORMATION
  Report Type: Spontaneous
  Country: US (occurrence: US)
  Receive Date: 20171128
  Receipt Date: 20171128
  Transmission Date: 20180321
  Serious: No
  Sender: FDA-Public Use
  Company Number: US-PFIZER INC-2017507192

PATIENT
  Age: 54 Year
  Sex: Female
  Weight: 72.57 kg

DRUGS (3)
  1. PREMARIN [Suspect]
     Active Substance: ESTROGENS, CONJUGATED
     Indication: HOT FLUSH
     Dosage: UNK UNK, DAILY
     Route: 067
     Dates: start: 201707, end: 201708
  2. PREMARIN [Suspect]
     Active Substance: ESTROGENS, CONJUGATED
     Indication: FEELING COLD
  3. PANTOPRAZOLE [Concomitant]
     Active Substance: PANTOPRAZOLE
     Indication: DYSPEPSIA
     Dosage: UNK
     Dates: start: 2013

REACTIONS (6)
  - Headache [Recovered/Resolved]
  - Pollakiuria [Recovered/Resolved]
  - Drug ineffective for unapproved indication [Unknown]
  - Intentional product use issue [Unknown]
  - Migraine [Recovered/Resolved]
  - Inappropriate schedule of drug administration [Unknown]

NARRATIVE: CASE EVENT DATE: 201707
